FAERS Safety Report 17224418 (Version 4)
Quarter: 2021Q3

REPORT INFORMATION
  Report Type: Spontaneous
  Country: IN (occurrence: IN)
  Receive Date: 20200102
  Receipt Date: 20210906
  Transmission Date: 20211014
  Serious: Yes (Death, Hospitalization, Other)
  Sender: FDA-Public Use
  Company Number: IN-PFIZER INC-2019559465

PATIENT
  Age: 67 Year
  Sex: Female

DRUGS (1)
  1. CRIZALK [Suspect]
     Active Substance: CRIZOTINIB
     Indication: LUNG ADENOCARCINOMA
     Dosage: 250 MG, 2X/DAY
     Route: 048
     Dates: start: 20191114, end: 20210321

REACTIONS (4)
  - Neoplasm progression [Fatal]
  - Pain [Unknown]
  - Pulmonary oedema [Unknown]
  - Back pain [Unknown]

NARRATIVE: CASE EVENT DATE: 2019
